FAERS Safety Report 4541051-6 (Version None)
Quarter: 2004Q4

REPORT INFORMATION
  Report Type: 
  Country: None (occurrence: None)
  Receive Date: 20041228
  Receipt Date: 20041217
  Transmission Date: 20050328
  Serious: Yes (Hospitalization, Other)
  Sender: FDA-Public Use
  Company Number: USA-2004-0018045

PATIENT
  Age: 55 Year
  Sex: Male

DRUGS (2)
  1. SPECTRACEF [Suspect]
     Indication: UPPER RESPIRATORY TRACT INFECTION
     Dosage: 200 MG, BID
     Dates: start: 20041101, end: 20041101
  2. ANTIHYPERTENSIVE [Concomitant]

REACTIONS (1)
  - ANAPHYLACTIC REACTION [None]
